FAERS Safety Report 5805915-5 (Version None)
Quarter: 2008Q3

REPORT INFORMATION
  Report Type: 
  Country: None (occurrence: None)
  Receive Date: 20080710
  Receipt Date: 20080701
  Transmission Date: 20090109
  Serious: Yes (Other)
  Sender: FDA-Public Use
  Company Number: US-JNJFOC-20080700519

PATIENT

DRUGS (35)
  1. REMICADE [Suspect]
     Route: 050
  2. REMICADE [Suspect]
     Route: 050
  3. REMICADE [Suspect]
     Route: 050
  4. REMICADE [Suspect]
     Route: 050
  5. REMICADE [Suspect]
     Route: 050
  6. REMICADE [Suspect]
     Route: 050
  7. REMICADE [Suspect]
     Route: 050
  8. REMICADE [Suspect]
     Route: 050
  9. REMICADE [Suspect]
     Route: 050
  10. REMICADE [Suspect]
     Route: 050
  11. REMICADE [Suspect]
     Route: 050
  12. REMICADE [Suspect]
     Route: 050
  13. REMICADE [Suspect]
     Route: 050
  14. REMICADE [Suspect]
     Route: 050
  15. REMICADE [Suspect]
     Route: 050
  16. REMICADE [Suspect]
     Route: 050
  17. REMICADE [Suspect]
     Route: 050
  18. REMICADE [Suspect]
     Route: 050
  19. REMICADE [Suspect]
     Route: 050
  20. REMICADE [Suspect]
     Route: 050
  21. REMICADE [Suspect]
     Route: 050
  22. REMICADE [Suspect]
     Route: 050
  23. REMICADE [Suspect]
     Route: 050
  24. REMICADE [Suspect]
     Route: 050
  25. REMICADE [Suspect]
     Route: 050
  26. REMICADE [Suspect]
     Route: 050
  27. REMICADE [Suspect]
     Route: 050
  28. REMICADE [Suspect]
     Route: 050
  29. REMICADE [Suspect]
     Route: 050
  30. REMICADE [Suspect]
     Route: 050
  31. REMICADE [Suspect]
     Route: 050
  32. REMICADE [Suspect]
     Route: 050
  33. REMICADE [Suspect]
     Indication: PATERNAL DRUGS AFFECTING FOETUS
     Dosage: 5 INFUSIONS ON UNSPECIFIED DATES PRIOR TO BASELINE
     Route: 050
  34. ACETAMINOPHEN [Concomitant]
     Indication: PATERNAL DRUGS AFFECTING FOETUS
  35. ANTIHISTAMINES [Concomitant]
     Indication: PATERNAL DRUGS AFFECTING FOETUS

REACTIONS (1)
  - PREMATURE BABY [None]
